FAERS Safety Report 4967669-4 (Version None)
Quarter: 2006Q2

REPORT INFORMATION
  Report Type: 
  Country: None (occurrence: None)
  Receive Date: 20060403
  Receipt Date: 20060317
  Transmission Date: 20061013
  Serious: Yes (Hospitalization)
  Sender: FDA-Public Use
  Company Number: DSA_27922_2006

PATIENT
  Age: 77 Year
  Sex: Female

DRUGS (6)
  1. DILTIAZEM [Suspect]
     Indication: HYPERTENSION
     Dosage: 240 MG BID PO
     Route: 048
     Dates: start: 20050901, end: 20060201
  2. COUMADIN [Concomitant]
  3. LASIX [Concomitant]
  4. COLCHICINE [Concomitant]
  5. ANTIBIOTICS [Concomitant]
  6. CORTISONE ACETATE TAB [Concomitant]

REACTIONS (17)
  - ASTHENIA [None]
  - COUGH [None]
  - DEHYDRATION [None]
  - DYSPNOEA [None]
  - EATING DISORDER [None]
  - GOUT [None]
  - HEART RATE INCREASED [None]
  - INFECTION [None]
  - INSOMNIA [None]
  - MALAISE [None]
  - OEDEMA PERIPHERAL [None]
  - RASH [None]
  - RENAL FAILURE [None]
  - RETCHING [None]
  - SKIN ULCER [None]
  - WEIGHT INCREASED [None]
  - WOUND SECRETION [None]
